FAERS Safety Report 15664699 (Version 1)
Quarter: 2018Q4

REPORT INFORMATION
  Report Type: Spontaneous
  Country: GB (occurrence: GB)
  Receive Date: 20181128
  Receipt Date: 20181128
  Transmission Date: 20190205
  Serious: Yes (Other)
  Sender: FDA-Public Use
  Company Number: GB-ACCORD-093816

PATIENT
  Age: 84 Year
  Sex: Female
  Weight: 38 kg

DRUGS (1)
  1. SIMVASTATIN. [Suspect]
     Active Substance: SIMVASTATIN
     Indication: PRODUCT USED FOR UNKNOWN INDICATION
     Dates: start: 20171016

REACTIONS (2)
  - Nausea [Unknown]
  - Syncope [Unknown]

NARRATIVE: CASE EVENT DATE: 20180110
